FAERS Safety Report 15917956 (Version 1)
Quarter: 2019Q1

REPORT INFORMATION
  Report Type: Report from Study
  Country: US (occurrence: US)
  Receive Date: 20190205
  Receipt Date: 20190205
  Transmission Date: 20190417
  Serious: Yes (Hospitalization)
  Sender: FDA-Public Use
  Company Number: US-SA-2019SA027492

PATIENT
  Age: 72 Year
  Sex: Female

DRUGS (1)
  1. DRONEDARONE [Suspect]
     Active Substance: DRONEDARONE
     Indication: HEART RATE INCREASED
     Dosage: UNK, BID
     Route: 048
     Dates: start: 2018

REACTIONS (3)
  - Heart rate increased [Recovered/Resolved]
  - Cardiac valve disease [Recovered/Resolved]
  - Rib fracture [Recovered/Resolved]
